FAERS Safety Report 9029433 (Version 1)
Quarter: 2013Q1

REPORT INFORMATION
  Report Type: Spontaneous
  Country: US (occurrence: US)
  Receive Date: 20130125
  Receipt Date: 20130125
  Transmission Date: 20140127
  Serious: Yes (Hospitalization, Other)
  Sender: FDA-Public Use
  Company Number: US-ASTRAZENECA-2013SE03494

PATIENT
  Age: 51 Year
  Sex: Male
  Weight: 88.5 kg

DRUGS (11)
  1. NEXIUM [Suspect]
     Indication: GASTROOESOPHAGEAL REFLUX DISEASE
     Route: 048
     Dates: start: 2007
  2. NEXIUM [Suspect]
     Indication: HIATUS HERNIA
     Route: 048
     Dates: start: 2007
  3. FENOFIBRATE [Concomitant]
     Indication: BLOOD CHOLESTEROL ABNORMAL
  4. BYSTOLIC [Concomitant]
  5. ASPIRIN [Concomitant]
  6. EFFIENT [Concomitant]
     Indication: ANTICOAGULANT THERAPY
  7. CLONAZAPAM [Concomitant]
  8. PREDNISONE [Concomitant]
     Indication: GOUT
     Dosage: PRN
  9. TRAMADOL [Concomitant]
     Indication: INTERVERTEBRAL DISC DEGENERATION
     Dosage: PRN
  10. OXYCODONE [Concomitant]
     Indication: GOUT
     Dosage: PRN
  11. OXYCODONE [Concomitant]
     Indication: NECK PAIN
     Dosage: PRN

REACTIONS (3)
  - Femur fracture [Unknown]
  - Myocardial infarction [Unknown]
  - Road traffic accident [Unknown]
